FAERS Safety Report 10677160 (Version 6)
Quarter: 2016Q2

REPORT INFORMATION
  Report Type: Report from Study
  Country: US (occurrence: US)
  Receive Date: 20141226
  Receipt Date: 20160510
  Transmission Date: 20160815
  Serious: Yes (Other)
  Sender: FDA-Public Use
  Company Number: US-UCBSA-2014018721

PATIENT
  Age: 58 Year
  Sex: Male
  Weight: 95 kg

DRUGS (4)
  1. CERTOLIZUMAB PEGOL [Suspect]
     Active Substance: CERTOLIZUMAB PEGOL
     Indication: CROHN^S DISEASE
     Dosage: 200 MG, EV 2 WEEKS(QOW); (LOT NUMBER: 310009, 504106, 50474-700-62 AND EXPIRY DAT
     Route: 058
     Dates: start: 20121206, end: 201601
  2. MESALAMINE. [Concomitant]
     Active Substance: MESALAMINE
     Indication: CROHN^S DISEASE
     Dosage: 2.4 G, 2X/DAY (BID), 1.2 G (2 TABS) TWICE DAILY STARTED ONE MONTH AGO
     Route: 048
     Dates: start: 2016
  3. CERTOLIZUMAB PEGOL [Suspect]
     Active Substance: CERTOLIZUMAB PEGOL
     Dosage: 200 MG, EV 2 WEEKS(QOW)
     Dates: start: 2016, end: 20160407
  4. ASACOL [Concomitant]
     Active Substance: MESALAMINE
     Indication: CROHN^S DISEASE
     Dosage: 800 MG, 3X/DAY (TID)
     Route: 048

REACTIONS (4)
  - Drug dose omission [Unknown]
  - Nasopharyngitis [Not Recovered/Not Resolved]
  - Abscess [Not Recovered/Not Resolved]
  - Herpes zoster [Recovering/Resolving]

NARRATIVE: CASE EVENT DATE: 20141022
